FAERS Safety Report 19488276 (Version 3)
Quarter: 2021Q3

REPORT INFORMATION
  Report Type: Spontaneous
  Country: AU (occurrence: AU)
  Receive Date: 20210702
  Receipt Date: 20210910
  Transmission Date: 20211014
  Serious: Yes (Other)
  Sender: FDA-Public Use
  Company Number: NVSC2021AU146236

PATIENT
  Sex: Female

DRUGS (1)
  1. FEMARA [Suspect]
     Active Substance: LETROZOLE
     Indication: NEOPLASM MALIGNANT
     Dosage: UNK
     Route: 065

REACTIONS (6)
  - Degenerative bone disease [Unknown]
  - Bone decalcification [Unknown]
  - Pain [Unknown]
  - Amnesia [Unknown]
  - Depression [Unknown]
  - Product packaging issue [Unknown]
